FAERS Safety Report 5218286-2 (Version None)
Quarter: 2007Q1

REPORT INFORMATION
  Report Type: 
  Country: None (occurrence: None)
  Receive Date: 20070124
  Receipt Date: 20070116
  Transmission Date: 20070707
  Serious: Yes (Other)
  Sender: FDA-Public Use
  Company Number: US-PFIZER INC-2006142613

PATIENT
  Sex: Female
  Weight: 62.1 kg

DRUGS (13)
  1. NORVASC [Suspect]
     Indication: BLOOD PRESSURE INCREASED
     Route: 048
     Dates: start: 20061114, end: 20061115
  2. ATENOLOL [Concomitant]
     Dosage: DAILY DOSE:100MG-FREQ:DAILY
  3. FUROSEMIDE [Concomitant]
     Dates: start: 20060901
  4. LEVOTHYROXINE SODIUM [Concomitant]
     Dosage: DAILY DOSE:50MCG-FREQ:EVERY EVENING
  5. PREMARIN [Concomitant]
  6. TOBRADEX [Concomitant]
  7. LUVOX [Concomitant]
  8. VITAMIN B-12 [Concomitant]
  9. MOTRIN [Concomitant]
  10. VITAMIN CAP [Concomitant]
  11. LORATADINE [Concomitant]
  12. ALPRAZOLAM [Concomitant]
  13. LOMOTIL [Concomitant]

REACTIONS (3)
  - DEPRESSION [None]
  - FATIGUE [None]
  - SUICIDAL IDEATION [None]
